FAERS Safety Report 17744491 (Version 1)
Quarter: 2020Q2

REPORT INFORMATION
  Report Type: Spontaneous
  Country: US (occurrence: US)
  Receive Date: 20200504
  Receipt Date: 20200504
  Transmission Date: 20200714
  Serious: No
  Sender: FDA-Public Use
  Company Number: None

PATIENT
  Age: 51 Year
  Sex: Male

DRUGS (1)
  1. HUMIRA [Suspect]
     Active Substance: ADALIMUMAB
     Indication: COLITIS ULCERATIVE
     Dosage: ?          OTHER DOSE:40MG/0.4ML;OTHER FREQUENCY:EVERY 14 DAYS;?
     Route: 058
     Dates: start: 20200220

REACTIONS (2)
  - Incorrect dose administered [None]
  - Wrong technique in device usage process [None]

NARRATIVE: CASE EVENT DATE: 20200504
